FAERS Safety Report 5304825-X (Version None)
Quarter: 2007Q2

REPORT INFORMATION
  Report Type: 
  Country: None (occurrence: None)
  Receive Date: 20070423
  Receipt Date: 20070412
  Transmission Date: 20071010
  Serious: Yes (Hospitalization)
  Sender: FDA-Public Use
  Company Number: FR-SANOFI-SYNTHELABO-A02200700700

PATIENT
  Age: 80 Year
  Sex: Male
  Weight: 70 kg

DRUGS (2)
  1. STILNOX [Suspect]
     Indication: DRUG ADMINISTRATION ERROR
     Dosage: PROBABLY 5 MG TO 10 MG ONCE
     Route: 060
     Dates: start: 20070306
  2. INFLUENZINUM 9CH [Concomitant]
     Indication: INFLUENZA IMMUNISATION
     Dosage: UNK
     Route: 060

REACTIONS (4)
  - ACCIDENTAL OVERDOSE [None]
  - DRUG ADMINISTRATION ERROR [None]
  - LOSS OF CONSCIOUSNESS [None]
  - SOMNOLENCE [None]
